FAERS Safety Report 9918680 (Version 2)
Quarter: 2014Q1

REPORT INFORMATION
  Report Type: Spontaneous
  Country: US (occurrence: US)
  Receive Date: 20140224
  Receipt Date: 20140224
  Transmission Date: 20141002
  Serious: Yes (Other)
  Sender: FDA-Public Use
  Company Number: US-GE HEALTHCARE MEDICAL DIAGNOSTICS-OSCN-PR-0910S-0455

PATIENT
  Age: 80 Year
  Sex: Female

DRUGS (6)
  1. OMNISCAN [Suspect]
     Indication: ABSCESS
     Route: 042
     Dates: start: 20061215, end: 20061215
  2. OMNISCAN [Suspect]
     Indication: LOCALISED INFECTION
     Route: 042
     Dates: start: 20070226, end: 20070226
  3. COUMADIN [Concomitant]
     Indication: ATRIAL FIBRILLATION
  4. SOLUMEDROL [Concomitant]
     Indication: NEPHROGENIC SYSTEMIC FIBROSIS
     Route: 042
  5. OXYGEN [Concomitant]
     Indication: CHRONIC OBSTRUCTIVE PULMONARY DISEASE
  6. INSULIN [Concomitant]
     Indication: DIABETES MELLITUS

REACTIONS (1)
  - Nephrogenic systemic fibrosis [Not Recovered/Not Resolved]
